FAERS Safety Report 5210931-0 (Version None)
Quarter: 2007Q1

REPORT INFORMATION
  Report Type: 
  Country: None (occurrence: None)
  Receive Date: 20070117
  Receipt Date: 20070108
  Transmission Date: 20070707
  Serious: Yes (Life-Threatening, Hospitalization, Other)
  Sender: FDA-Public Use
  Company Number: FR-ABBOTT-07P-056-0355194-00

PATIENT
  Sex: Female
  Weight: 70 kg

DRUGS (22)
  1. HUMIRA [Suspect]
     Indication: ANKYLOSING SPONDYLITIS
     Route: 058
     Dates: start: 20050315, end: 20051104
  2. HUMIRA [Suspect]
     Route: 058
     Dates: start: 20051104, end: 20060217
  3. HUMIRA [Suspect]
     Dates: end: 20061121
  4. INFLIXIMAB [Suspect]
     Indication: ANKYLOSING SPONDYLITIS
     Route: 042
     Dates: start: 20011212, end: 20011212
  5. INFLIXIMAB [Suspect]
     Route: 042
     Dates: start: 20011228, end: 20021224
  6. INFLIXIMAB [Suspect]
     Route: 042
     Dates: start: 20030204, end: 20030204
  7. INFLIXIMAB [Suspect]
     Route: 042
     Dates: start: 20030318, end: 20030318
  8. INFLIXIMAB [Suspect]
     Route: 042
     Dates: start: 20030429, end: 20030429
  9. INFLIXIMAB [Suspect]
     Route: 042
     Dates: start: 20030610, end: 20030610
  10. INFLIXIMAB [Suspect]
     Route: 042
     Dates: start: 20030718, end: 20030718
  11. INFLIXIMAB [Suspect]
     Route: 042
     Dates: start: 20030827, end: 20031014
  12. ETANERCEPT [Suspect]
     Indication: ANKYLOSING SPONDYLITIS
     Route: 048
     Dates: start: 20041114, end: 20050108
  13. ETANERCEPT [Suspect]
     Dates: start: 20050115, end: 20050218
  14. BUPRENORPHINE HCL [Concomitant]
     Indication: DRUG USE FOR UNKNOWN INDICATION
  15. PARACETAMOL, CAFEINE, DEXTROPROPXYPHENE [Concomitant]
     Indication: DRUG USE FOR UNKNOWN INDICATION
  16. ACETAMINOPHEN- PROPOXYPHENE HCL TAB [Concomitant]
     Indication: DRUG USE FOR UNKNOWN INDICATION
  17. FENTANYL TRANSDERMAL SYSTEM [Concomitant]
     Indication: DRUG USE FOR UNKNOWN INDICATION
  18. CELECOXIB [Concomitant]
     Indication: DRUG USE FOR UNKNOWN INDICATION
     Dates: start: 20000901, end: 20010801
  19. PIROXICAM BETA-CYCLODEXTRINE [Concomitant]
     Indication: DRUG USE FOR UNKNOWN INDICATION
     Dates: start: 20010801
  20. KETOPOFENE [Concomitant]
     Indication: ANKYLOSING SPONDYLITIS
     Dates: start: 20011101
  21. ESTRADIOL [Concomitant]
     Indication: HORMONE REPLACEMENT THERAPY
     Dates: start: 20010401
  22. PROGESTERONE [Concomitant]
     Indication: HORMONE REPLACEMENT THERAPY
     Dates: start: 20010401

REACTIONS (5)
  - ABDOMINAL PAIN UPPER [None]
  - PANCREATIC CARCINOMA [None]
  - PERITONEAL CARCINOMA [None]
  - PNEUMONIA [None]
  - WEIGHT DECREASED [None]
